FAERS Safety Report 6720933-0 (Version None)
Quarter: 2010Q2

REPORT INFORMATION
  Report Type: 
  Country: None (occurrence: None)
  Receive Date: 20100512
  Receipt Date: 20100505
  Transmission Date: 20101027
  Serious: Yes (Other)
  Sender: FDA-Public Use
  Company Number: IT-JNJFOC-20100406961

PATIENT
  Sex: Female

DRUGS (2)
  1. LEVOFLOXACIN [Suspect]
     Indication: PHARYNGITIS
     Route: 048
  2. LEVOFLOXACIN [Suspect]
     Route: 048

REACTIONS (5)
  - ADVERSE EVENT [None]
  - BED REST [None]
  - DYSARTHRIA [None]
  - DYSPNOEA [None]
  - HYPOTONIA [None]
